FAERS Safety Report 13693296 (Version 1)
Quarter: 2017Q2

REPORT INFORMATION
  Report Type: Spontaneous
  Country: US (occurrence: US)
  Receive Date: 20170626
  Receipt Date: 20170626
  Transmission Date: 20170830
  Serious: Yes (Life-Threatening, Hospitalization, Disabling)
  Sender: FDA-Public Use
  Company Number: None

PATIENT
  Age: 57 Year
  Sex: Female
  Weight: 54 kg

DRUGS (7)
  1. WELLBUTRIN [Concomitant]
     Active Substance: BUPROPION HYDROCHLORIDE
  2. ASPIRIN. [Concomitant]
     Active Substance: ASPIRIN
  3. QUITIPINE [Concomitant]
  4. CLONAZEPINE [Concomitant]
     Active Substance: CLONAZEPAM
  5. CLONAZEPAM. [Suspect]
     Active Substance: CLONAZEPAM
     Indication: ANXIETY
  6. METROPOL [Concomitant]
  7. ZOLOFT [Concomitant]
     Active Substance: SERTRALINE HYDROCHLORIDE

REACTIONS (20)
  - Weight decreased [None]
  - Fatigue [None]
  - Abnormal dreams [None]
  - Alopecia [None]
  - Fear [None]
  - Restlessness [None]
  - Crying [None]
  - Paraesthesia [None]
  - Drug intolerance [None]
  - Hyperhidrosis [None]
  - Pain [None]
  - Post-traumatic stress disorder [None]
  - Psychotic disorder [None]
  - Anxiety [None]
  - Insomnia [None]
  - Withdrawal syndrome [None]
  - Influenza like illness [None]
  - Tremor [None]
  - Hypophagia [None]
  - Major depression [None]

NARRATIVE: CASE EVENT DATE: 20151101
